FAERS Safety Report 16253078 (Version 3)
Quarter: 2020Q2

REPORT INFORMATION
  Report Type: Spontaneous
  Country: US (occurrence: US)
  Receive Date: 20190429
  Receipt Date: 20200601
  Transmission Date: 20200713
  Serious: No
  Sender: FDA-Public Use
  Company Number: US-SA-2019SA114380

PATIENT

DRUGS (12)
  1. FLUOCINONIDE. [Concomitant]
     Active Substance: FLUOCINONIDE
     Indication: ECZEMA
     Dosage: UNK UNK, BID
  2. UREA. [Concomitant]
     Active Substance: UREA
     Indication: DRY SKIN
     Dosage: 40 %, BID
  3. UREA. [Concomitant]
     Active Substance: UREA
     Dosage: 40 %, PRN
  4. PROTOPIC [Concomitant]
     Active Substance: TACROLIMUS
     Dosage: 0.1 %, PRN
  5. DUPIXENT [Suspect]
     Active Substance: DUPILUMAB
     Indication: DERMATITIS ATOPIC
     Dosage: 600 MG, 1X
     Route: 058
     Dates: start: 20190314, end: 20190314
  6. DUPIXENT [Suspect]
     Active Substance: DUPILUMAB
     Dosage: 600MG ,1X (2X300 MG)
     Route: 058
     Dates: start: 20190405, end: 20190405
  7. PROTOPIC [Concomitant]
     Active Substance: TACROLIMUS
     Indication: ECZEMA
     Dosage: 0.1 %, BID
  8. LASIX [Concomitant]
     Active Substance: FUROSEMIDE
     Dosage: 40 MG, QD
  9. LEVOTHYROXINE. [Concomitant]
     Active Substance: LEVOTHYROXINE
     Dosage: 25 UG, QD
  10. LOSARTAN. [Concomitant]
     Active Substance: LOSARTAN
     Dosage: 100 MG, QD
  11. DUPIXENT [Suspect]
     Active Substance: DUPILUMAB
     Dosage: 300 MG, QOW
     Route: 058
  12. FLUOCINONIDE. [Concomitant]
     Active Substance: FLUOCINONIDE
     Dosage: UNK UNK, PRN

REACTIONS (4)
  - Rash [Recovered/Resolved]
  - Extra dose administered [Unknown]
  - Product dose omission [Unknown]
  - Dry skin [Unknown]

NARRATIVE: CASE EVENT DATE: 20190405
